FAERS Safety Report 6070564-3 (Version None)
Quarter: 2009Q1

REPORT INFORMATION
  Report Type: 
  Country: None (occurrence: None)
  Receive Date: 20090209
  Receipt Date: 20090203
  Transmission Date: 20090719
  Serious: Yes (Hospitalization)
  Sender: FDA-Public Use
  Company Number: US-JNJFOC-20090201142

PATIENT
  Sex: Female
  Weight: 73.48 kg

DRUGS (1)
  1. DURAGESIC-100 [Suspect]
     Indication: NEURALGIA
     Route: 062

REACTIONS (4)
  - CEREBROVASCULAR ACCIDENT [None]
  - FLUID RETENTION [None]
  - HEMIPARESIS [None]
  - MUSCLE SPASMS [None]
